FAERS Safety Report 14519310 (Version 1)
Quarter: 2018Q1

REPORT INFORMATION
  Report Type: Report from Study
  Country: CN (occurrence: CN)
  Receive Date: 20180212
  Receipt Date: 20180212
  Transmission Date: 20180509
  Serious: Yes (Death)
  Sender: FDA-Public Use
  Company Number: CN-PFIZER INC-2018057182

PATIENT
  Age: 33 Year
  Sex: Male

DRUGS (4)
  1. MEROPENEM. [Suspect]
     Active Substance: MEROPENEM
     Indication: CNS VENTRICULITIS
     Dosage: UNK
  2. MINOCYCLINE [Suspect]
     Active Substance: MINOCYCLINE\MINOCYCLINE HYDROCHLORIDE
     Indication: CNS VENTRICULITIS
     Dosage: UNK
  3. TIGECYCLINE. [Suspect]
     Active Substance: TIGECYCLINE
     Indication: CNS VENTRICULITIS
     Dosage: UNK
     Route: 042
  4. AMPICILLIN SODIUM/SULBACTAM SODIUM [Suspect]
     Active Substance: AMPICILLIN SODIUM\SULBACTAM SODIUM
     Indication: CNS VENTRICULITIS
     Dosage: UNK

REACTIONS (1)
  - Drug ineffective [Fatal]
